FAERS Safety Report 6956513-1 (Version None)
Quarter: 2010Q3

REPORT INFORMATION
  Report Type: 
  Country: None (occurrence: None)
  Receive Date: 20100830
  Receipt Date: 20100721
  Transmission Date: 20110219
  Serious: No
  Sender: FDA-Public Use
  Company Number: US-AMGEN-KDL426082

PATIENT
  Sex: Male

DRUGS (2)
  1. NEUPOGEN [Suspect]
     Indication: PRODUCT USED FOR UNKNOWN INDICATION
     Dates: start: 20100705
  2. PEGASYS [Concomitant]

REACTIONS (5)
  - BURNING SENSATION [None]
  - INFLAMMATION [None]
  - INJECTION SITE NERVE DAMAGE [None]
  - INJECTION SITE REACTION [None]
  - WHITE BLOOD CELL COUNT DECREASED [None]
